FAERS Safety Report 4728110-X (Version None)
Quarter: 2005Q3

REPORT INFORMATION
  Report Type: 
  Country: None (occurrence: None)
  Receive Date: 20050729
  Receipt Date: 20050715
  Transmission Date: 20060218
  Serious: Yes (Death, Hospitalization)
  Sender: FDA-Public Use
  Company Number: PHBS2005TW10182

PATIENT

DRUGS (9)
  1. STARLIX [Suspect]
     Indication: DIABETES MELLITUS
     Dosage: UNK, UNK
     Route: 048
  2. FOLIC ACID [Concomitant]
     Dosage: 1 TAB/DAY
  3. VITAMINS [Concomitant]
     Dosage: 1 CAP/DAY
  4. CACO3 [Concomitant]
     Dosage: 3 TAB/DAY
  5. TAPAL [Concomitant]
     Dosage: 1 TAB/DAY
  6. ISMO [Concomitant]
     Dosage: 2 TAB/DAY
  7. GLUCOBAY [Concomitant]
     Dosage: 3 TAB/DAY
  8. NORMACOL [Concomitant]
     Dosage: 1 PACK/DAY
  9. MUCOSOLVON [Concomitant]
     Dosage: 3 TAB/DAY

REACTIONS (2)
  - RASH [None]
  - STEVENS-JOHNSON SYNDROME [None]
